FAERS Safety Report 15419545 (Version 1)
Quarter: 2018Q3

REPORT INFORMATION
  Report Type: Report from Study
  Country: CO (occurrence: CO)
  Receive Date: 20180924
  Receipt Date: 20180924
  Transmission Date: 20181010
  Serious: Yes (Other)
  Sender: FDA-Public Use
  Company Number: CO-UCBSA-2018042399

PATIENT
  Age: 54 Year
  Sex: Female
  Weight: 80 kg

DRUGS (1)
  1. CERTOLIZUMAB PEGOL [Suspect]
     Active Substance: CERTOLIZUMAB PEGOL
     Indication: RHEUMATOID ARTHRITIS
     Dosage: 400 MG, EV 30 DAYS
     Route: 058
     Dates: start: 20150113, end: 20180809

REACTIONS (1)
  - Foot deformity [Recovered/Resolved]

NARRATIVE: CASE EVENT DATE: 20170101
